FAERS Safety Report 7553234-1 (Version None)
Quarter: 2011Q2

REPORT INFORMATION
  Report Type: 
  Country: None (occurrence: None)
  Receive Date: 20110617
  Receipt Date: 20081229
  Transmission Date: 20111010
  Serious: No
  Sender: FDA-Public Use
  Company Number: 2009BI000259

PATIENT
  Sex: Female

DRUGS (2)
  1. TYSABRI [Suspect]
     Indication: MULTIPLE SCLEROSIS
     Route: 042
     Dates: start: 20070726, end: 20100331
  2. TYSABRI [Suspect]
     Route: 042
     Dates: start: 20110114

REACTIONS (3)
  - FEELING JITTERY [None]
  - HYPOAESTHESIA [None]
  - FATIGUE [None]
